FAERS Safety Report 4911378-4 (Version None)
Quarter: 2006Q1

REPORT INFORMATION
  Report Type: 
  Country: None (occurrence: None)
  Receive Date: 20060213
  Receipt Date: 20060207
  Transmission Date: 20060701
  Serious: Yes (Hospitalization)
  Sender: FDA-Public Use
  Company Number: 2005BI022137

PATIENT
  Age: 33 Year
  Sex: Female

DRUGS (21)
  1. AVONEX [Suspect]
     Indication: MULTIPLE SCLEROSIS
     Dosage: 30 UG; QW; IM
     Route: 030
     Dates: start: 20030221
  2. AVONEX [Suspect]
     Indication: MULTIPLE SCLEROSIS
     Dosage: 30 UG; QW; IM
     Route: 030
  3. ALLEGRA [Concomitant]
  4. NEURONTIN [Concomitant]
  5. IMURAN [Concomitant]
  6. FERROUS SULFATE TAB [Concomitant]
  7. XANAX [Concomitant]
  8. LEXAPRO [Concomitant]
  9. DEXADRINE [Concomitant]
  10. ORTHO EVRA [Concomitant]
  11. MULTI-VITAMIN [Concomitant]
  12. PRILOSEC [Concomitant]
  13. KEPPRA [Concomitant]
  14. TRAZODONE [Concomitant]
  15. ZOMIG [Concomitant]
  16. BACLOFEN [Concomitant]
  17. IMODIUM [Concomitant]
  18. TYLENOL ES [Concomitant]
  19. MOTRIN [Concomitant]
  20. VIACTIV [Concomitant]
  21. ALEVE COLD AND SINUS [Concomitant]

REACTIONS (4)
  - BLOOD PRESSURE INCREASED [None]
  - HEADACHE [None]
  - NECK PAIN [None]
  - VOMITING [None]
